FAERS Safety Report 7704704-4 (Version None)
Quarter: 2011Q3

REPORT INFORMATION
  Report Type: 
  Country: None (occurrence: None)
  Receive Date: 20110823
  Receipt Date: 20100713
  Transmission Date: 20111222
  Serious: No
  Sender: FDA-Public Use
  Company Number: US-BRISTOL-MYERS SQUIBB COMPANY-15191661

PATIENT
  Sex: Female

DRUGS (2)
  1. ESTRACE [Suspect]
  2. PREMARIN [Suspect]
     Route: 067

REACTIONS (2)
  - COCCYDYNIA [None]
  - VAGINAL INFECTION [None]
